FAERS Safety Report 19969714 (Version 1)
Quarter: 2021Q4

REPORT INFORMATION
  Report Type: Spontaneous
  Country: DE (occurrence: DE)
  Receive Date: 20211019
  Receipt Date: 20211019
  Transmission Date: 20220303
  Serious: Yes (Other)
  Sender: FDA-Public Use
  Company Number: DE-002147023-NVSC2020DE097007

PATIENT
  Sex: Male

DRUGS (9)
  1. VALSARTAN [Suspect]
     Active Substance: VALSARTAN
     Indication: Essential hypertension
     Dosage: UNK
     Route: 065
     Dates: start: 20161216
  2. VALSARTAN [Suspect]
     Active Substance: VALSARTAN
     Dosage: UNK
     Route: 065
     Dates: start: 20180615
  3. VALSARTAN [Suspect]
     Active Substance: VALSARTAN
     Dosage: 0.5 MG (160 MG (80 MG)) 98 TABLETS
     Route: 048
     Dates: start: 20140111
  4. VALSARTAN [Suspect]
     Active Substance: VALSARTAN
     Dosage: UNK
     Route: 065
     Dates: start: 20150731
  5. VALSARTAN [Suspect]
     Active Substance: VALSARTAN
     Indication: Essential hypertension
     Dosage: 160 MILLIGRAM
     Route: 065
  6. VALSARTAN [Suspect]
     Active Substance: VALSARTAN
     Indication: Hypertension
     Dosage: 0.5 DF OF 160 MG, QD
     Route: 065
     Dates: start: 2017, end: 2018
  7. VALSARTAN [Suspect]
     Active Substance: VALSARTAN
     Indication: Hypertension
     Dosage: 160 MILLIGRAM
     Route: 065
     Dates: start: 2013, end: 2014
  8. VALSARTAN [Suspect]
     Active Substance: VALSARTAN
     Indication: Essential hypertension
  9. VALSARTAN [Concomitant]
     Active Substance: VALSARTAN
     Indication: Product used for unknown indication
     Dosage: 80 MILLIGRAM
     Route: 065

REACTIONS (2)
  - Malignant melanoma [Unknown]
  - Melanocytic naevus [Unknown]

NARRATIVE: CASE EVENT DATE: 20190823
